FAERS Safety Report 9351852 (Version 1)
Quarter: 2013Q2

REPORT INFORMATION
  Report Type: Spontaneous
  Country: US (occurrence: US)
  Receive Date: 20130617
  Receipt Date: 20130617
  Transmission Date: 20140414
  Serious: Yes (Death)
  Sender: FDA-Public Use
  Company Number: US-GLAXOSMITHKLINE-A0780814A

PATIENT
  Age: 85 Year
  Sex: Female

DRUGS (7)
  1. AVANDIA [Suspect]
     Indication: DIABETES MELLITUS
     Dosage: 4MG PER DAY
     Route: 048
     Dates: start: 200312, end: 20060524
  2. NORVASC [Concomitant]
  3. LASIX [Concomitant]
  4. VICODIN [Concomitant]
  5. LIPITOR [Concomitant]
  6. ASA [Concomitant]
  7. ALBUTEROL [Concomitant]

REACTIONS (1)
  - Acute myocardial infarction [Fatal]
